FAERS Safety Report 8014049-3 (Version None)
Quarter: 2011Q4

REPORT INFORMATION
  Report Type: 
  Country: None (occurrence: None)
  Receive Date: 20111229
  Receipt Date: 20111222
  Transmission Date: 20120403
  Serious: No
  Sender: FDA-Public Use
  Company Number: US-BAYER-2011-109788

PATIENT
  Age: 90 Year
  Sex: Female
  Weight: 61 kg

DRUGS (4)
  1. ACETYLSALICYLIC ACID SRT [Interacting]
  2. ALEVE (CAPLET) [Interacting]
     Indication: ARTHRITIS
     Dosage: 2 TABLETS ONCE DAILY - 100S
     Route: 048
     Dates: start: 20111201, end: 20111222
  3. ALEVE (CAPLET) [Suspect]
     Indication: PAIN
     Dosage: 2 DF, QD
     Route: 048
     Dates: start: 20111107
  4. BISOPROLOL FUMARATE [Concomitant]

REACTIONS (4)
  - FATIGUE [None]
  - PAIN [None]
  - NO ADVERSE EVENT [None]
  - SOMNOLENCE [None]
